FAERS Safety Report 5172659-5 (Version None)
Quarter: 2006Q4

REPORT INFORMATION
  Report Type: 
  Country: None (occurrence: None)
  Receive Date: 20061205
  Receipt Date: 20061120
  Transmission Date: 20070319
  Serious: Yes (Life-Threatening, Hospitalization, Disabling)
  Sender: FDA-Public Use
  Company Number: 2006-305

PATIENT
  Age: 75 Year
  Sex: Female
  Weight: 70 kg

DRUGS (9)
  1. CIPROFLOXACIN [Suspect]
     Indication: URINARY TRACT INFECTION
     Dosage: 500MG/DAY
     Dates: start: 20061023, end: 20061028
  2. AMITRIPTYLINE HCL [Concomitant]
  3. COMBIVENT [Concomitant]
  4. FENTANYL [Concomitant]
  5. FUROSEMIDE [Concomitant]
  6. PANTOPRAZOLE SODIUM [Concomitant]
  7. QUININE SULFATE [Concomitant]
  8. SERETIDE [Concomitant]
  9. UNIPHYLLIN TIOTROPIUM [Concomitant]

REACTIONS (2)
  - DIARRHOEA [None]
  - INCONTINENCE [None]
